FAERS Safety Report 9725993 (Version 1)
Quarter: 2013Q4

REPORT INFORMATION
  Report Type: Spontaneous
  Country: SE (occurrence: SE)
  Receive Date: 20131203
  Receipt Date: 20131203
  Transmission Date: 20140711
  Serious: Yes (Hospitalization)
  Sender: FDA-Public Use
  Company Number: SE-ASTRAZENECA-2013SE73672

PATIENT
  Age: 90 Year
  Sex: Female

DRUGS (12)
  1. FELODIPINE [Suspect]
     Route: 048
     Dates: start: 20040408, end: 20130531
  2. ENALAPRIL [Suspect]
     Dates: start: 20130301
  3. XALATAN [Concomitant]
  4. KALCIPOS-D [Concomitant]
  5. COSOPT [Concomitant]
  6. FOLACIN [Concomitant]
     Dosage: 1 MG
  7. ALPHAGAN [Concomitant]
  8. CALMURIL [Concomitant]
  9. FURIX [Concomitant]
  10. SELOKEN ZOC [Concomitant]
  11. VISCOTEARS [Concomitant]
  12. THREE UNSPECIFIED DRUGS [Concomitant]

REACTIONS (4)
  - Syncope [Recovered/Resolved]
  - Fatigue [Recovered/Resolved]
  - Hypotension [Recovered/Resolved]
  - Vomiting [Recovered/Resolved]
